FAERS Safety Report 6187502-5 (Version None)
Quarter: 2009Q2

REPORT INFORMATION
  Report Type: 
  Country: None (occurrence: None)
  Receive Date: 20090512
  Receipt Date: 20090507
  Transmission Date: 20091009
  Serious: Yes (Other)
  Sender: FDA-Public Use
  Company Number: US-B.I. PHARMACEUTICALS,INC./RIDGEFIELD-2009-BP-05769BP

PATIENT
  Sex: Male

DRUGS (17)
  1. SPIRIVA [Suspect]
     Indication: CHRONIC OBSTRUCTIVE PULMONARY DISEASE
     Dosage: 18MCG
     Route: 055
     Dates: start: 20081101, end: 20090415
  2. SYMBICORT [Concomitant]
     Indication: CHRONIC OBSTRUCTIVE PULMONARY DISEASE
  3. PROVENTIL [Concomitant]
     Indication: CHRONIC OBSTRUCTIVE PULMONARY DISEASE
  4. DAPSONE [Concomitant]
     Indication: CARDIAC FAILURE CONGESTIVE
  5. FUROSEMIDE [Concomitant]
     Indication: CARDIAC FAILURE CONGESTIVE
  6. PROTONIX [Concomitant]
     Indication: GASTRIC PH DECREASED
  7. CYMBALTA [Concomitant]
     Indication: PAIN
  8. CYMBALTA [Concomitant]
     Indication: CONVULSION
  9. ASPIRIN [Concomitant]
     Indication: PROPHYLAXIS
  10. AZITHROMYCIN [Concomitant]
     Indication: CARDIAC DISORDER
  11. AZITHROMYCIN [Concomitant]
     Indication: NEUROLOGICAL SYMPTOM
  12. REQUIP [Concomitant]
     Indication: MUSCLE SPASMS
  13. VICODIN [Concomitant]
     Indication: PAIN
  14. DILAUDID [Concomitant]
     Indication: PAIN
  15. MUCINEX [Concomitant]
     Indication: UPPER RESPIRATORY TRACT CONGESTION
  16. METOPROLOL [Concomitant]
     Indication: CARDIAC DISORDER
  17. LACTULOSE [Concomitant]
     Indication: AMMONIA INCREASED

REACTIONS (16)
  - ANGIOPATHY [None]
  - BLOOD IRON DECREASED [None]
  - BLOOD TESTOSTERONE DECREASED [None]
  - CEREBRAL CALCIFICATION [None]
  - CONVULSION [None]
  - DIABETES MELLITUS [None]
  - DYSPHONIA [None]
  - EPISTAXIS [None]
  - MASTICATION DISORDER [None]
  - MUSCLE SPASMS [None]
  - RASH [None]
  - SPEECH DISORDER [None]
  - SWOLLEN TONGUE [None]
  - THROAT LESION [None]
  - TONGUE DISCOLOURATION [None]
  - VISION BLURRED [None]
